FAERS Safety Report 23811390 (Version 1)
Quarter: 2024Q2

REPORT INFORMATION
  Report Type: Spontaneous
  Country: US (occurrence: US)
  Receive Date: 20240503
  Receipt Date: 20240503
  Transmission Date: 20240715
  Serious: Yes (Hospitalization)
  Sender: FDA-Public Use
  Company Number: US-AVET LIFESCIENCES LTD-2024-AVET-000136

PATIENT
  Age: 47 Year
  Sex: Male

DRUGS (4)
  1. OCTREOTIDE [Suspect]
     Active Substance: OCTREOTIDE\OCTREOTIDE ACETATE
     Indication: Prophylaxis
     Dosage: 200 MCG, TID
     Route: 065
  2. ACARBOSE [Suspect]
     Active Substance: ACARBOSE
     Indication: Prophylaxis
     Dosage: UNKNOWN
     Route: 065
  3. PREDNISONE [Concomitant]
     Active Substance: PREDNISONE
     Dosage: 20 MILLIGRAM, BID
     Route: 065
  4. DIAZOXIDE [Concomitant]
     Active Substance: DIAZOXIDE
     Dosage: 50 MILLIGRAM, TID
     Route: 065

REACTIONS (2)
  - Gastrointestinal disorder [Unknown]
  - Rash [Unknown]
